FAERS Safety Report 15414986 (Version 1)
Quarter: 2018Q3

REPORT INFORMATION
  Report Type: Spontaneous
  Country: TN (occurrence: TN)
  Receive Date: 20180921
  Receipt Date: 20180921
  Transmission Date: 20181010
  Serious: Yes (Death)
  Sender: FDA-Public Use
  Company Number: TN-IMPAX LABORATORIES, INC-2018-IPXL-03020

PATIENT
  Sex: Male

DRUGS (3)
  1. CARBIDOPA?LEVODOPA ER [Suspect]
     Active Substance: CARBIDOPA\LEVODOPA
     Indication: PRODUCT USE IN UNAPPROVED INDICATION
  2. CARBIDOPA?LEVODOPA ER [Suspect]
     Active Substance: CARBIDOPA\LEVODOPA
     Indication: DOPA-RESPONSIVE DYSTONIA
     Dosage: UNK; PROGRESSIVE DOSAGES
     Route: 065
  3. CARBIDOPA?LEVODOPA ER [Suspect]
     Active Substance: CARBIDOPA\LEVODOPA
     Indication: ENCEPHALOPATHY

REACTIONS (5)
  - Product use issue [Unknown]
  - Drug administered to patient of inappropriate age [Unknown]
  - Pneumonia aspiration [Fatal]
  - Dyskinesia [Unknown]
  - Product use in unapproved indication [Unknown]
